FAERS Safety Report 15286526 (Version 3)
Quarter: 2018Q4

REPORT INFORMATION
  Report Type: Report from Study
  Country: US (occurrence: US)
  Receive Date: 20180816
  Receipt Date: 20181008
  Transmission Date: 20190204
  Serious: Yes (Hospitalization)
  Sender: FDA-Public Use
  Company Number: US-ACTELION-A-NJ2018-177402

PATIENT
  Age: 9 Week
  Sex: Female

DRUGS (2)
  1. TRACLEER [Suspect]
     Active Substance: BOSENTAN
     Indication: PULMONARY ARTERIAL HYPERTENSION
     Dosage: 16 MG, Q12HRS
     Route: 048
     Dates: start: 20180706, end: 20180928
  2. REVATIO [Concomitant]
     Active Substance: SILDENAFIL CITRATE
     Dosage: 0.3 ML, Q8
     Route: 048
     Dates: start: 20180711

REACTIONS (2)
  - Hospitalisation [Unknown]
  - Cardiac operation [Unknown]

NARRATIVE: CASE EVENT DATE: 201808
